FAERS Safety Report 24675262 (Version 1)
Quarter: 2024Q4

REPORT INFORMATION
  Report Type: Spontaneous
  Country: US (occurrence: US)
  Receive Date: 20241128
  Receipt Date: 20241128
  Transmission Date: 20250115
  Serious: Yes (Other)
  Sender: GLAND PHARMA LTD
  Company Number: US-GLANDPHARMA-US-2024GLNSPO00991

PATIENT

DRUGS (1)
  1. OXALIPLATIN [Suspect]
     Active Substance: OXALIPLATIN
     Indication: Chemotherapy
     Route: 065

REACTIONS (7)
  - Neuropathy peripheral [Unknown]
  - Ophthalmic migraine [Unknown]
  - Pain in jaw [Unknown]
  - Ageusia [Unknown]
  - Insomnia [Unknown]
  - Constipation [Unknown]
  - Oropharyngeal pain [Unknown]
